FAERS Safety Report 7478187-6 (Version None)
Quarter: 2011Q2

REPORT INFORMATION
  Report Type: 
  Country: None (occurrence: None)
  Receive Date: 20110513
  Receipt Date: 20110504
  Transmission Date: 20111010
  Serious: Yes (Other)
  Sender: FDA-Public Use
  Company Number: PHHY2010BR42608

PATIENT
  Age: 25 Year
  Sex: Female
  Weight: 49 kg

DRUGS (1)
  1. DICLOFENAC SODIUM [Suspect]
     Indication: TIBIA FRACTURE
     Dosage: 70 MG, Q12H
     Route: 048
     Dates: start: 20100628

REACTIONS (3)
  - BLOOD PRESSURE INCREASED [None]
  - FEELING ABNORMAL [None]
  - DIZZINESS [None]
